FAERS Safety Report 8811489 (Version 1)
Quarter: 2012Q4

REPORT INFORMATION
  Report Type: Report from Study
  Country: JP (occurrence: JP)
  Receive Date: 20120927
  Receipt Date: 20120927
  Transmission Date: 20130627
  Serious: Yes (Other)
  Sender: FDA-Public Use
  Company Number: JP-ASTELLAS-2012JP008703

PATIENT
  Sex: Male

DRUGS (3)
  1. MIRABEGRON [Suspect]
     Indication: HYPERTONIC BLADDER
     Dosage: 50 mg, UID/QD
     Route: 048
     Dates: start: 20120616, end: 20120619
  2. ITORON [Concomitant]
     Dosage: 50 g, Unknown/D
     Route: 061
  3. PETROLATUM SALICYLATE [Concomitant]
     Dosage: 20 g, Unknown/D
     Route: 061

REACTIONS (1)
  - Cardiac failure [Recovered/Resolved]
